FAERS Safety Report 9645634 (Version 1)
Quarter: 2013Q4

REPORT INFORMATION
  Report Type: Spontaneous
  Country: US (occurrence: None)
  Receive Date: 20131024
  Receipt Date: 20131024
  Transmission Date: 20140711
  Serious: Yes (Hospitalization)
  Sender: FDA-Public Use
  Company Number: None

PATIENT
  Sex: Female
  Weight: 49.9 kg

DRUGS (1)
  1. FORTEO [Suspect]
     Dosage: SUB Q
     Route: 058
     Dates: start: 20130413, end: 201308

REACTIONS (2)
  - Hip surgery [None]
  - Oesophageal ulcer haemorrhage [None]
